FAERS Safety Report 7321476-6 (Version None)
Quarter: 2011Q1

REPORT INFORMATION
  Report Type: 
  Country: None (occurrence: None)
  Receive Date: 20110228
  Receipt Date: 20100525
  Transmission Date: 20110831
  Serious: No
  Sender: FDA-Public Use
  Company Number: US-PFIZER INC-2010036278

PATIENT
  Age: 27 Year
  Sex: Female
  Weight: 83.9 kg

DRUGS (2)
  1. AMBIEN [Concomitant]
     Dosage: UNK
  2. GEODON [Suspect]
     Indication: BIPOLAR II DISORDER
     Dosage: 80 MG, 2X/DAY
     Route: 048
     Dates: start: 20100301, end: 20100319

REACTIONS (1)
  - HYPOAESTHESIA [None]
